FAERS Safety Report 7899494-9 (Version None)
Quarter: 2011Q4

REPORT INFORMATION
  Report Type: 
  Country: None (occurrence: None)
  Receive Date: 20111107
  Receipt Date: 20110915
  Transmission Date: 20120403
  Serious: No
  Sender: FDA-Public Use
  Company Number: US-AMGEN-USASP2011047562

PATIENT
  Sex: Female

DRUGS (4)
  1. METHOTREXATE [Concomitant]
     Dosage: 8 MG, QWK
     Dates: start: 20100101
  2. ENBREL [Suspect]
     Indication: RHEUMATOID ARTHRITIS
  3. ENBREL [Suspect]
     Indication: OSTEOARTHRITIS
  4. ENBREL [Suspect]
     Indication: PSORIATIC ARTHROPATHY
     Dosage: 50 MG, QWK
     Dates: start: 20110705, end: 20110927

REACTIONS (5)
  - TENDON RUPTURE [None]
  - INTERVERTEBRAL DISC PROTRUSION [None]
  - PSORIATIC ARTHROPATHY [None]
  - BURSITIS [None]
  - DRUG INEFFECTIVE [None]
